FAERS Safety Report 7950175-2 (Version None)
Quarter: 2011Q4

REPORT INFORMATION
  Report Type: 
  Country: None (occurrence: None)
  Receive Date: 20111130
  Receipt Date: 20111123
  Transmission Date: 20120403
  Serious: Yes (Congenital Anomaly, Other)
  Sender: FDA-Public Use
  Company Number: US-ABBOTT-09P-163-0498325-00

PATIENT
  Sex: Male

DRUGS (1)
  1. HUMIRA [Suspect]
     Indication: MATERNAL EXPOSURE TIMING UNSPECIFIED
     Route: 064

REACTIONS (5)
  - CONGENITAL HYDRONEPHROSIS [None]
  - PREMATURE BABY [None]
  - REFLUX NEPHROPATHY [None]
  - FOETAL EXPOSURE DURING PREGNANCY [None]
  - URETERIC STENOSIS [None]
